FAERS Safety Report 9516115 (Version 2)
Quarter: 2013Q3

REPORT INFORMATION
  Report Type: Report from Study
  Country: FR (occurrence: FR)
  Receive Date: 20130911
  Receipt Date: 20130926
  Transmission Date: 20140515
  Serious: Yes (Other)
  Sender: FDA-Public Use
  Company Number: FR-BAYER-2013-109218

PATIENT
  Age: 72 Year
  Sex: Male
  Weight: 79 kg

DRUGS (8)
  1. SORAFENIB (RAF KINASE INHIBITOR) [Suspect]
     Indication: COLORECTAL CANCER METASTATIC
     Dosage: UNK
     Dates: start: 20121204
  2. SORAFENIB (RAF KINASE INHIBITOR) [Suspect]
     Indication: COLORECTAL CANCER METASTATIC
     Dosage: 400 MG, UNK
     Route: 048
     Dates: start: 20130205, end: 20130507
  3. IRINOTECAN [Suspect]
     Indication: COLORECTAL CANCER METASTATIC
     Dosage: 300 MG, UNK
     Route: 042
     Dates: start: 20130205, end: 20130507
  4. CO OLMETEC [Concomitant]
     Indication: HYPERTENSION
     Dosage: UNK
     Route: 048
     Dates: start: 20111005
  5. IPERTEN [Concomitant]
     Indication: HYPERTENSION
     Dosage: UNK
     Route: 048
     Dates: start: 20111005
  6. RIVATRIL [Concomitant]
     Indication: EPILEPSY
     Dosage: UNK
     Route: 048
     Dates: start: 20111005
  7. LAROXYL [Concomitant]
     Indication: DEPRESSION
     Dosage: UNK
     Route: 048
     Dates: start: 20111005
  8. LYRICA [Concomitant]
     Indication: NEURALGIA
     Dosage: UNK
     Route: 048
     Dates: start: 20111005

REACTIONS (1)
  - Pulmonary embolism [Recovered/Resolved with Sequelae]
